FAERS Safety Report 22121280 (Version 1)
Quarter: 2023Q1

REPORT INFORMATION
  Report Type: Spontaneous
  Country: CA (occurrence: CA)
  Receive Date: 20230321
  Receipt Date: 20230321
  Transmission Date: 20230417
  Serious: Yes (Other)
  Sender: FDA-Public Use
  Company Number: CA-AMERICAN REGENT INC-2022003122

PATIENT
  Age: 21 Year
  Sex: Female

DRUGS (2)
  1. VENOFER [Suspect]
     Active Substance: IRON SUCROSE
     Indication: Iron deficiency anaemia
     Dosage: 300 MILLIGRAM, SINGLE
     Route: 042
     Dates: start: 2022, end: 2022
  2. VENOFER [Suspect]
     Active Substance: IRON SUCROSE
     Dosage: 300 MILLIGRAM, SINGLE
     Dates: start: 20221013, end: 20221013

REACTIONS (6)
  - Pain [Unknown]
  - Musculoskeletal chest pain [Unknown]
  - Back pain [Unknown]
  - Chest pain [Unknown]
  - Peripheral swelling [Unknown]
  - Product quality issue [Unknown]

NARRATIVE: CASE EVENT DATE: 20221013
